FAERS Safety Report 4312646-X (Version None)
Quarter: 2004Q1

REPORT INFORMATION
  Report Type: 
  Country: None (occurrence: None)
  Receive Date: 20040305
  Receipt Date: 20040220
  Transmission Date: 20041129
  Serious: Yes (Death)
  Sender: FDA-Public Use
  Company Number: 2004S1000604

PATIENT
  Age: 51 Year
  Sex: Male

DRUGS (2)
  1. FLURAZEPAM HCL [Suspect]
     Dosage: ORAL
     Route: 048
  2. FLURAZEPAM HCL [Suspect]

REACTIONS (4)
  - COMPLETED SUICIDE [None]
  - DRUG SCREEN POSITIVE [None]
  - GUN SHOT WOUND [None]
  - SELF-MEDICATION [None]
